FAERS Safety Report 7226405-1 (Version None)
Quarter: 2011Q1

REPORT INFORMATION
  Report Type: 
  Country: None (occurrence: None)
  Receive Date: 20110110
  Receipt Date: 20110110
  Transmission Date: 20110831
  Serious: Yes (Hospitalization)
  Sender: FDA-Public Use
  Company Number: None

PATIENT
  Age: 15 Year
  Sex: Female
  Weight: 54.4316 kg

DRUGS (1)
  1. CYMBALTA [Suspect]
     Indication: PAIN
     Dosage: 30 MG 1 PO
     Route: 048
     Dates: start: 20101201, end: 20101231

REACTIONS (8)
  - ANXIETY [None]
  - OBSESSIVE-COMPULSIVE DISORDER [None]
  - TREMOR [None]
  - NAUSEA [None]
  - HEADACHE [None]
  - CRYING [None]
  - DECREASED APPETITE [None]
  - NEGATIVE THOUGHTS [None]
